FAERS Safety Report 17967539 (Version 1)
Quarter: 2020Q3

REPORT INFORMATION
  Report Type: Spontaneous
  Country: US (occurrence: US)
  Receive Date: 20200701
  Receipt Date: 20200701
  Transmission Date: 20201103
  Serious: No
  Sender: FDA-Public Use
  Company Number: US-MYLANLABS-2020M1058115

PATIENT
  Sex: Female
  Weight: 64 kg

DRUGS (3)
  1. TEMAZEPAM. [Concomitant]
     Active Substance: TEMAZEPAM
     Dosage: UNK
  2. XANAX [Concomitant]
     Active Substance: ALPRAZOLAM
     Dosage: UNK
  3. ESTRADIOL. [Suspect]
     Active Substance: ESTRADIOL
     Indication: PRODUCT USED FOR UNKNOWN INDICATION
     Dosage: 0.1 MG PER DAY, TWICE?WEEKLY
     Route: 062
     Dates: start: 2020, end: 20200616

REACTIONS (6)
  - Hot flush [Recovering/Resolving]
  - Application site discomfort [Recovering/Resolving]
  - Drug ineffective [Recovering/Resolving]
  - Irritability [Recovering/Resolving]
  - Night sweats [Recovering/Resolving]
  - Product quality issue [Unknown]

NARRATIVE: CASE EVENT DATE: 2020
